FAERS Safety Report 5962284-8 (Version None)
Quarter: 2008Q4

REPORT INFORMATION
  Report Type: 
  Country: None (occurrence: None)
  Receive Date: 20081121
  Receipt Date: 20081104
  Transmission Date: 20090506
  Serious: Yes (Hospitalization)
  Sender: FDA-Public Use
  Company Number: GB-SOLVAY-00208005613

PATIENT
  Age: 25315 Day
  Sex: Male
  Weight: 96 kg

DRUGS (10)
  1. DEXAMETHASONE 1.5MG TAB [Concomitant]
     Indication: ASTHENIA
     Dosage: DAILY DOSE: 4 MILLIGRAM(S)
     Route: 065
     Dates: start: 20080609
  2. PERINDOPRIL ERBUMINE [Suspect]
     Indication: HYPERTENSION
     Dosage: DAILY DOSE: 8 MILLIGRAM(S)
     Route: 048
     Dates: start: 20060101
  3. DOCUSATE [Concomitant]
     Indication: HYPERTENSION
     Dosage: DAILY DOSE: 200 MILLIGRAM(S)
     Route: 048
     Dates: start: 20060101
  4. BLINDED THERAPY [Suspect]
     Indication: COLORECTAL CANCER
     Dosage: DAILY DOSE: 1 DOSAGE FORM
     Route: 048
     Dates: start: 20080717
  5. LACTULOSE [Concomitant]
     Indication: CONSTIPATION
     Dosage: DAILY DOSE: 60 MILLILITRE(S)
     Route: 065
     Dates: start: 20060619
  6. IRINOTECAN HYDROCHLORIDE [Suspect]
     Indication: COLORECTAL CANCER
     Dosage: DAILY DOSE:  1 IN 2 WEEKS
     Route: 065
     Dates: start: 20080717
  7. FLUOROURACIL [Suspect]
     Indication: COLORECTAL CANCER
     Dosage: DAILY DOSE:  925 MG 1 IN 2 WKS
     Route: 065
     Dates: start: 20080717
  8. LEUCOVORIN CALCIUM [Suspect]
     Indication: COLORECTAL CANCER
     Dosage: DAILY DOSE: 450MG 1 IN 2 WEEKS
     Route: 065
     Dates: start: 20080717
  9. ATENOLOL [Suspect]
     Indication: HYPERTENSION
     Dosage: DAILY DOSE: 100 MILLIGRAM(S)
     Route: 065
     Dates: start: 20060101
  10. DOXAZOSIN MESYLATE [Suspect]
     Indication: HYPERTENSION
     Dosage: DAILY DOSE: 8 MILLIGRAM(S)
     Route: 065
     Dates: start: 20060101

REACTIONS (1)
  - MYOCARDIAL ISCHAEMIA [None]
